FAERS Safety Report 12622094 (Version 1)
Quarter: 2016Q3

REPORT INFORMATION
  Report Type: Spontaneous
  Country: US (occurrence: US)
  Receive Date: 20160804
  Receipt Date: 20160804
  Transmission Date: 20161109
  Serious: No
  Sender: FDA-Public Use
  Company Number: US-ANACOR-2016ANA00177

PATIENT
  Sex: Female
  Weight: 61.22 kg

DRUGS (5)
  1. KERYDIN [Suspect]
     Active Substance: TAVABOROLE
     Indication: FUNGAL INFECTION
     Dosage: ONE DROP 1X/DAY
     Dates: start: 2015, end: 2015
  2. KERYDIN [Suspect]
     Active Substance: TAVABOROLE
     Dosage: ONE DROP 1X/DAY
     Dates: start: 2016, end: 2016
  3. DULERA [Concomitant]
     Active Substance: FORMOTEROL FUMARATE DIHYDRATE\MOMETASONE FUROATE
  4. KERYDIN [Suspect]
     Active Substance: TAVABOROLE
     Dosage: ONE DROP 1X/DAY
     Dates: start: 201605, end: 201605
  5. FLONASE [Concomitant]
     Active Substance: FLUTICASONE PROPIONATE

REACTIONS (5)
  - Dry skin [Recovering/Resolving]
  - Drug administered at inappropriate site [Recovered/Resolved]
  - Pain in extremity [Recovering/Resolving]
  - Skin exfoliation [Recovering/Resolving]
  - Skin fissures [Recovering/Resolving]
